FAERS Safety Report 13811211 (Version 1)
Quarter: 2017Q3

REPORT INFORMATION
  Report Type: Spontaneous
  Country: US (occurrence: US)
  Receive Date: 20170728
  Receipt Date: 20170728
  Transmission Date: 20171127
  Serious: No
  Sender: FDA-Public Use
  Company Number: US-ROCHE-770783

PATIENT
  Sex: Female

DRUGS (2)
  1. BONIVA [Suspect]
     Active Substance: IBANDRONATE SODIUM
     Indication: PRODUCT USED FOR UNKNOWN INDICATION
     Dosage: FORM: INJECTION
     Route: 042
  2. BONIVA [Suspect]
     Active Substance: IBANDRONATE SODIUM
     Dosage: DOSE AND STRENGTH: 03 MG/ML
     Route: 042

REACTIONS (4)
  - Joint swelling [Recovering/Resolving]
  - Arthralgia [Unknown]
  - Erythema [Unknown]
  - Walking aid user [Unknown]

NARRATIVE: CASE EVENT DATE: 20110318
